FAERS Safety Report 9095496 (Version 1)
Quarter: 2013Q1

REPORT INFORMATION
  Report Type: Spontaneous
  Country: IT (occurrence: None)
  Receive Date: 20130124
  Receipt Date: 20130124
  Transmission Date: 20140127
  Serious: Yes (Other)
  Sender: FDA-Public Use
  Company Number: TIF2013A00010

PATIENT
  Age: 55 Year
  Sex: Male

DRUGS (1)
  1. COMPETACT [Suspect]
     Route: 048
     Dates: start: 20110101, end: 20110530

REACTIONS (2)
  - Haematochezia [None]
  - Abdominal pain lower [None]
